FAERS Safety Report 6106601-7 (Version None)
Quarter: 2009Q1

REPORT INFORMATION
  Report Type: 
  Country: None (occurrence: None)
  Receive Date: 20090302
  Receipt Date: 20090210
  Transmission Date: 20090719
  Serious: Yes (Death, Life-Threatening, Hospitalization, Other)
  Sender: FDA-Public Use
  Company Number: TCI2008A05310

PATIENT
  Age: 68 Year
  Sex: Male

DRUGS (8)
  1. CANDESARTAN CILEXETIL [Suspect]
     Indication: ESSENTIAL HYPERTENSION
     Dosage: (8MG) PER ORAL
     Route: 048
     Dates: start: 20071204, end: 20080225
  2. CANDESARTAN CILEXETIL [Suspect]
     Indication: ESSENTIAL HYPERTENSION
     Dosage: (8MG) PER ORAL
     Route: 048
     Dates: start: 20080226, end: 20081019
  3. PIOGLITAZONE HCL [Suspect]
     Indication: TYPE 2 DIABETES MELLITUS
     Dosage: (30MG) PER ORAL
     Route: 048
     Dates: start: 20071204, end: 20080225
  4. PIOGLITAZONE HCL [Suspect]
     Indication: TYPE 2 DIABETES MELLITUS
     Dosage: (30MG) PER ORAL
     Route: 048
     Dates: start: 20080226, end: 20081019
  5. KARY UNI (PIRENOXINE) [Concomitant]
  6. ALOSENN (ALLOSENN) [Concomitant]
  7. MOHRUS (KETOPORFEN) [Concomitant]
  8. ZANTAC 150 [Concomitant]

REACTIONS (19)
  - ABDOMINAL PAIN UPPER [None]
  - BLOOD ALKALINE PHOSPHATASE INCREASED [None]
  - BLOOD LACTATE DEHYDROGENASE ABNORMAL [None]
  - CANCER PAIN [None]
  - CONSTIPATION [None]
  - EAR INJURY [None]
  - FALL [None]
  - GAMMA-GLUTAMYLTRANSFERASE INCREASED [None]
  - GLYCOSYLATED HAEMOGLOBIN INCREASED [None]
  - HEPATIC FUNCTION ABNORMAL [None]
  - LACERATION [None]
  - MALIGNANT ASCITES [None]
  - MALNUTRITION [None]
  - METASTASES TO LIVER [None]
  - OEDEMA PERIPHERAL [None]
  - PANCREATIC CARCINOMA [None]
  - PLEURAL EFFUSION [None]
  - RENAL IMPAIRMENT [None]
  - RESPIRATORY ARREST [None]
